FAERS Safety Report 7489014-5 (Version None)
Quarter: 2011Q2

REPORT INFORMATION
  Report Type: 
  Country: None (occurrence: None)
  Receive Date: 20110518
  Receipt Date: 20110504
  Transmission Date: 20111010
  Serious: Yes (Other)
  Sender: FDA-Public Use
  Company Number: US-CELGENEUS-163-21880-11050757

PATIENT
  Age: 74 Year
  Sex: Female

DRUGS (5)
  1. NABUMETONE [Concomitant]
     Route: 065
  2. METHOCARBAMOL [Concomitant]
     Route: 065
  3. CLONEX [Concomitant]
     Route: 065
  4. REVLIMID [Suspect]
     Dosage: 5 MILLIGRAM
     Route: 048
     Dates: start: 20100812, end: 20100801
  5. KETOROLAC TROMETHAMINE [Concomitant]
     Route: 065

REACTIONS (3)
  - POST PROCEDURAL HAEMORRHAGE [None]
  - THROMBOCYTOPENIA [None]
  - NEUTROPENIA [None]
